FAERS Safety Report 6314254-8 (Version None)
Quarter: 2009Q3

REPORT INFORMATION
  Report Type: 
  Country: None (occurrence: None)
  Receive Date: 20090817
  Receipt Date: 20090807
  Transmission Date: 20100115
  Serious: Yes (Death, Other)
  Sender: FDA-Public Use
  Company Number: 2009S1006573

PATIENT
  Sex: Male

DRUGS (1)
  1. PHOSPHOSODA FLAVOR NOT SPECIFIED [Suspect]
     Dosage: PO
     Route: 048
     Dates: start: 20081101

REACTIONS (2)
  - DIALYSIS [None]
  - RENAL FAILURE [None]
